FAERS Safety Report 5492681-9 (Version None)
Quarter: 2007Q4

REPORT INFORMATION
  Report Type: 
  Country: None (occurrence: None)
  Receive Date: 20071022
  Receipt Date: 20071012
  Transmission Date: 20080405
  Serious: Yes (Other)
  Sender: FDA-Public Use
  Company Number: MA-PFIZER INC-2007087209

PATIENT
  Sex: Male

DRUGS (2)
  1. AMLOR [Suspect]
  2. ACCUPRIL [Suspect]
     Indication: HYPERTENSION
     Route: 048

REACTIONS (1)
  - RENAL FAILURE [None]
